FAERS Safety Report 9375205 (Version 6)
Quarter: 2014Q1

REPORT INFORMATION
  Report Type: Spontaneous
  Country: US (occurrence: US)
  Receive Date: 20130628
  Receipt Date: 20140327
  Transmission Date: 20141002
  Serious: Yes (Disabling)
  Sender: FDA-Public Use
  Company Number: US-JNJFOC-20130615451

PATIENT
  Age: 80 Year
  Sex: Male
  Weight: 83.01 kg

DRUGS (25)
  1. REMICADE [Suspect]
     Indication: RHEUMATOID ARTHRITIS
     Dosage: DOSE WAS 300/250 CC.
     Route: 042
     Dates: start: 20040526, end: 20130328
  2. REMICADE [Suspect]
     Indication: RHEUMATOID ARTHRITIS
     Route: 042
     Dates: start: 2004
  3. METHOTREXATE [Concomitant]
     Indication: RHEUMATOID ARTHRITIS
     Route: 065
     Dates: start: 20110221, end: 20130531
  4. ASMANEX [Concomitant]
     Dosage: 60 METERED DOSES 220 MCG/INH AEPB
     Route: 065
  5. ASPIRIN [Concomitant]
     Route: 065
  6. CELEXA [Concomitant]
     Route: 065
  7. MULTIPLE VITAMINS [Concomitant]
     Route: 065
  8. ESTRADIOL [Concomitant]
     Route: 065
  9. FERROUS SULPHATE [Concomitant]
     Dosage: 65 FE
     Route: 065
  10. FEXOFENADINE HYDROCHLORIDE [Concomitant]
     Route: 065
  11. FLUTAMIDE [Concomitant]
     Route: 065
  12. FLUTICASONE PROPIONATE [Concomitant]
     Dosage: 50 MCG/ACT SUSP, AS DIRECTED
     Route: 065
  13. FOLIC ACID [Concomitant]
     Route: 065
  14. FUROSEMIDE [Concomitant]
     Route: 065
  15. KLORCON [Concomitant]
     Dosage: M10 10 MEQ TBCR
     Route: 065
  16. LISINOPRIL [Concomitant]
     Route: 065
  17. METOPROLOL TARTRATE [Concomitant]
     Route: 065
  18. NEXIUM [Concomitant]
     Dosage: PACK
     Route: 065
  19. PANTOPRAZOLE SODIUM [Concomitant]
     Dosage: TBEC
     Route: 065
  20. SIMVASTATIN [Concomitant]
     Route: 065
  21. SPIRIVA HANDIHALER [Concomitant]
     Dosage: 18 MCG
     Route: 065
  22. XOPENEX [Concomitant]
     Dosage: HFA 45 MCG/ACT AERO, AS DIRECTED
     Route: 065
  23. ZOLPIDEM TARTRATE [Concomitant]
     Route: 065
  24. LUPRON [Concomitant]
     Route: 065
  25. PREDNISONE [Concomitant]
     Route: 065

REACTIONS (2)
  - Leukaemia [Not Recovered/Not Resolved]
  - Anaemia [Not Recovered/Not Resolved]
